FAERS Safety Report 6273130-X (Version None)
Quarter: 2009Q3

REPORT INFORMATION
  Report Type: 
  Country: None (occurrence: None)
  Receive Date: 20090715
  Receipt Date: 20090715
  Transmission Date: 20100115
  Serious: Yes (Other)
  Sender: FDA-Public Use
  Company Number: None

PATIENT
  Age: 75 Year
  Sex: Male
  Weight: 70.4 kg

DRUGS (4)
  1. CETUXIMAB [Suspect]
     Indication: RECTAL CANCER
     Dosage: WEEKLY: 250 MG/M^2 IV
     Route: 042
     Dates: start: 20090518
  2. OXALIPLATIN [Suspect]
     Dosage: 85 MG/M^2 IV DAYS 1 + 15
     Dates: start: 20090614
  3. FLUOROURACIL [Concomitant]
  4. LEUCOVORIN CALCIUM [Concomitant]

REACTIONS (1)
  - HYPOKALAEMIA [None]
